FAERS Safety Report 6082333-9 (Version None)
Quarter: 2009Q1

REPORT INFORMATION
  Report Type: 
  Country: None (occurrence: None)
  Receive Date: 20090218
  Receipt Date: 20090206
  Transmission Date: 20090719
  Serious: Yes (Hospitalization)
  Sender: FDA-Public Use
  Company Number: BE-ROCHE-604425

PATIENT
  Sex: Female
  Weight: 59 kg

DRUGS (4)
  1. CAPECITABINE [Suspect]
     Indication: RECTAL CANCER METASTATIC
     Route: 048
     Dates: start: 20081028, end: 20081217
  2. OXALIPLATIN [Suspect]
     Indication: RECTAL CANCER METASTATIC
     Dosage: DOSE: Q3W
     Route: 042
     Dates: start: 20081028, end: 20081210
  3. EMCONCOR [Concomitant]
     Route: 048
  4. LORAMET [Concomitant]
     Route: 048

REACTIONS (8)
  - ANXIETY [None]
  - CYANOSIS [None]
  - DIARRHOEA [None]
  - DYSPNOEA [None]
  - NAUSEA [None]
  - PYREXIA [None]
  - RASH [None]
  - TACHYCARDIA [None]
